FAERS Safety Report 9206778 (Version 2)
Quarter: 2013Q2

REPORT INFORMATION
  Report Type: Spontaneous
  Country: JP (occurrence: JP)
  Receive Date: 20130403
  Receipt Date: 20130424
  Transmission Date: 20140414
  Serious: Yes (Hospitalization)
  Sender: FDA-Public Use
  Company Number: JP-B.I. PHARMACEUTICALS,INC./RIDGEFIELD-2012-BI-02332NB

PATIENT
  Age: 67 Year
  Sex: Male
  Weight: 80 kg

DRUGS (6)
  1. PRAZAXA [Suspect]
     Indication: ATRIAL FIBRILLATION
     Dosage: 300 MG
     Route: 048
     Dates: start: 20110419, end: 20111018
  2. PRAZAXA [Suspect]
     Dosage: 300 MG
     Route: 048
     Dates: start: 20110830
  3. PRAZAXA [Suspect]
     Dosage: 150 MG
     Route: 048
     Dates: start: 20111004, end: 20111018
  4. TENORMIN [Concomitant]
     Dosage: 50 MG
     Route: 048
     Dates: start: 20030520
  5. NORVASC [Concomitant]
     Dosage: 5 MG
     Route: 048
     Dates: start: 20080513
  6. BEPRICOR [Concomitant]
     Dosage: 150 MG
     Route: 048
     Dates: start: 20070410

REACTIONS (5)
  - Melaena [Not Recovered/Not Resolved]
  - Large intestine polyp [Not Recovered/Not Resolved]
  - Colon cancer [Not Recovered/Not Resolved]
  - Activated partial thromboplastin time prolonged [Not Recovered/Not Resolved]
  - Activated partial thromboplastin time prolonged [Not Recovered/Not Resolved]
